FAERS Safety Report 14305136 (Version 1)
Quarter: 2017Q4

REPORT INFORMATION
  Report Type: Report from Study
  Country: JP (occurrence: JP)
  Receive Date: 20171219
  Receipt Date: 20171219
  Transmission Date: 20180321
  Serious: Yes (Life-Threatening, Other)
  Sender: FDA-Public Use
  Company Number: JP-OTSUKA-004881

PATIENT
  Age: 66 Year
  Sex: Female
  Weight: 39.7 kg

DRUGS (44)
  1. GASTER [Suspect]
     Active Substance: FAMOTIDINE
     Indication: PRODUCT USED FOR UNKNOWN INDICATION
     Dosage: 2 DF, DAILY DOSE
     Route: 041
     Dates: start: 20080806, end: 20080910
  2. AKINETON [Concomitant]
     Active Substance: BIPERIDEN HYDROCHLORIDE
     Indication: PRODUCT USED FOR UNKNOWN INDICATION
     Dosage: 3 MG, QD
     Route: 048
  3. AKINETON [Concomitant]
     Active Substance: BIPERIDEN HYDROCHLORIDE
     Dosage: 2 MG, QD
     Route: 048
     Dates: start: 20080112, end: 20080523
  4. EPL [Concomitant]
     Active Substance: LECITHIN
     Indication: PRODUCT USED FOR UNKNOWN INDICATION
     Dosage: 1500 MG, QD
     Route: 048
     Dates: end: 20080805
  5. URSO [Concomitant]
     Active Substance: URSODIOL
     Indication: PRODUCT USED FOR UNKNOWN INDICATION
     Dosage: 300 MG, QD
     Route: 048
  6. ARIPIPRAZOLE. [Suspect]
     Active Substance: ARIPIPRAZOLE
     Dosage: 3 MG, BID
     Route: 048
     Dates: start: 20080112, end: 20080805
  7. LACTEC [Suspect]
     Active Substance: CALCIUM CHLORIDE ANHYDROUS\POTASSIUM CHLORIDE\SODIUM CHLORIDE\SODIUM LACTATE
     Indication: PRODUCT USED FOR UNKNOWN INDICATION
     Dosage: 1000 ML, DAILY DOSE
     Route: 041
     Dates: start: 20080805, end: 20080805
  8. TEGRETOL [Concomitant]
     Active Substance: CARBAMAZEPINE
     Dosage: 150 MG, QD
     Route: 048
     Dates: start: 20080607, end: 20080613
  9. NEULEPTIL [Concomitant]
     Active Substance: PERICIAZINE
     Indication: SCHIZOPHRENIA
     Dosage: 50 MG, QD
     Route: 048
     Dates: end: 20080523
  10. MAGNESIUM OXIDE. [Concomitant]
     Active Substance: MAGNESIUM OXIDE
     Indication: PRODUCT USED FOR UNKNOWN INDICATION
     Dosage: 2 G, DAILY DOSE
     Route: 048
     Dates: end: 20080805
  11. SENNA [Concomitant]
     Active Substance: SENNA LEAF\SENNOSIDES\SENNOSIDES A AND B
     Indication: PRODUCT USED FOR UNKNOWN INDICATION
     Dosage: UNK
     Route: 065
     Dates: start: 20080524, end: 20080805
  12. ARIPIPRAZOLE. [Suspect]
     Active Substance: ARIPIPRAZOLE
     Indication: SCHIZOPHRENIA
     Dosage: 3 MG, BID
     Route: 048
     Dates: start: 20070922, end: 20071102
  13. FAMOTIDINE. [Suspect]
     Active Substance: FAMOTIDINE
     Indication: PRODUCT USED FOR UNKNOWN INDICATION
     Dosage: 2 DF, QD
     Route: 041
     Dates: start: 20080806, end: 20080910
  14. NEULEPTIL [Concomitant]
     Active Substance: PERICIAZINE
     Dosage: 20 MG, QD
     Route: 048
     Dates: start: 20080607, end: 20080614
  15. ROHYPNOL [Concomitant]
     Active Substance: FLUNITRAZEPAM
     Indication: SCHIZOPHRENIA
     Dosage: 2 MG, QD
     Route: 048
  16. HIRNAMIN [Concomitant]
     Active Substance: PHENOTHIAZINE
     Indication: SCHIZOPHRENIA
     Dosage: 25 MG, QD
     Route: 048
  17. HIRNAMIN [Concomitant]
     Active Substance: PHENOTHIAZINE
     Dosage: 15 MG, QD
     Route: 048
     Dates: start: 20080517, end: 20080523
  18. PURSENNID [Concomitant]
     Active Substance: SENNOSIDES A AND B
     Indication: PRODUCT USED FOR UNKNOWN INDICATION
     Dosage: 12 MG, QD
     Route: 048
     Dates: start: 20080524, end: 20080805
  19. ATROPINE SULFATE. [Concomitant]
     Active Substance: ATROPINE SULFATE
     Indication: CARDIO-RESPIRATORY ARREST
     Dosage: 2 DF, DAILY DOSE
     Route: 041
     Dates: start: 20080805, end: 20080805
  20. TEGRETOL [Concomitant]
     Active Substance: CARBAMAZEPINE
     Indication: SCHIZOPHRENIA
     Dosage: 300 MG, QD
     Route: 048
  21. AKINETON [Concomitant]
     Active Substance: BIPERIDEN HYDROCHLORIDE
     Dosage: 1 MG, QD
     Route: 048
     Dates: start: 20080524, end: 20080705
  22. NEULEPTIL [Concomitant]
     Active Substance: PERICIAZINE
     Dosage: 30 MG, QD
     Route: 048
     Dates: start: 20080524, end: 20080606
  23. GASMOTIN [Concomitant]
     Active Substance: MOSAPRIDE CITRATE
     Indication: PRODUCT USED FOR UNKNOWN INDICATION
     Dosage: 15 MG, QD
     Route: 048
  24. GASTER [Concomitant]
     Active Substance: FAMOTIDINE
     Indication: PRODUCT USED FOR UNKNOWN INDICATION
     Dosage: 20 MG, QD
     Route: 048
     Dates: end: 20080805
  25. CARBAMAZEPINE. [Concomitant]
     Active Substance: CARBAMAZEPINE
     Indication: PRODUCT USED FOR UNKNOWN INDICATION
     Dosage: UNK
     Route: 065
  26. FLUNITRAZEPAM [Concomitant]
     Active Substance: FLUNITRAZEPAM
     Indication: PRODUCT USED FOR UNKNOWN INDICATION
     Dosage: UNK
     Route: 065
  27. AMINOLEBAN EN POWDER [Suspect]
     Active Substance: AMINO ACIDS
     Indication: PRODUCT USED FOR UNKNOWN INDICATION
     Dosage: 500 ML, QD
     Route: 041
     Dates: start: 20080806, end: 20080910
  28. IMPROMEN [Concomitant]
     Active Substance: BROMPERIDOL
     Indication: SCHIZOPHRENIA
     Dosage: 5 MG, QD
     Route: 048
  29. IMPROMEN [Concomitant]
     Active Substance: BROMPERIDOL
     Dosage: 2 MG, QD
     Route: 048
     Dates: start: 20080329, end: 20080805
  30. ROHYPNOL [Concomitant]
     Active Substance: FLUNITRAZEPAM
     Dosage: 0.5 MG, QD
     Route: 048
     Dates: start: 20080419, end: 20080503
  31. HIRNAMIN [Concomitant]
     Active Substance: PHENOTHIAZINE
     Dosage: 5 MG, QD
     Route: 048
     Dates: start: 20080524, end: 20080607
  32. HIBERNA [Concomitant]
     Active Substance: PROMETHAZINE HYDROCHLORIDE
     Indication: PRODUCT USED FOR UNKNOWN INDICATION
     Dosage: 50 MG, QD
     Route: 048
     Dates: end: 20071215
  33. RHYTHMY [Concomitant]
     Active Substance: RILMAZAFONE HYDROCHLORIDE
     Indication: SCHIZOPHRENIA
     Dosage: 2 MG, QD
     Route: 048
     Dates: start: 20080503, end: 20080805
  34. BOSMIN [Concomitant]
     Active Substance: EPINEPHRINE
     Indication: CARDIO-RESPIRATORY ARREST
     Dosage: 1 DF, DAILY DOSE
     Route: 065
     Dates: start: 20080805, end: 20080805
  35. LEVOMEPROMAZINE [Concomitant]
     Active Substance: LEVOMEPROMAZINE
     Indication: PRODUCT USED FOR UNKNOWN INDICATION
     Dosage: UNK
     Route: 065
  36. LACTEC G [Suspect]
     Active Substance: CALCIUM CHLORIDE\POTASSIUM CHLORIDE\SODIUM CHLORIDE\SODIUM LACTATE\SORBITOL
     Indication: PRODUCT USED FOR UNKNOWN INDICATION
     Dosage: 500 ML, DAILY DOSE
     Route: 041
     Dates: start: 20080806, end: 20080823
  37. ROHYPNOL [Concomitant]
     Active Substance: FLUNITRAZEPAM
     Indication: INSOMNIA
     Dosage: 1 MG, QD
     Route: 048
     Dates: start: 20080329, end: 20080418
  38. SUPACAL [Concomitant]
     Indication: PRODUCT USED FOR UNKNOWN INDICATION
     Dosage: 120 MG, QD
     Route: 048
     Dates: end: 20080805
  39. ARIPIPRAZOLE. [Suspect]
     Active Substance: ARIPIPRAZOLE
     Dosage: 3 MG, TID
     Route: 048
     Dates: start: 20071103, end: 20080111
  40. SOLDEM 3A [Suspect]
     Active Substance: CARBOHYDRATES\POTASSIUM CHLORIDE\SODIUM CHLORIDE\SODIUM LACTATE
     Indication: PRODUCT USED FOR UNKNOWN INDICATION
     Dosage: 1000 ML, DAILY DOSE
     Route: 041
     Dates: start: 20080805, end: 20080812
  41. C-PARA [Suspect]
     Active Substance: VITAMINS
     Indication: PRODUCT USED FOR UNKNOWN INDICATION
     Dosage: 1 DF, DAILY DOSE
     Route: 041
     Dates: start: 20080806, end: 20080829
  42. AMINOFLUID [Suspect]
     Active Substance: AMINO ACIDS\DEXTROSE\ELECTROLYTES NOS
     Indication: PRODUCT USED FOR UNKNOWN INDICATION
     Dosage: 500 ML, DAILY DOSE
     Route: 041
     Dates: start: 20080806, end: 20080910
  43. TEGRETOL [Concomitant]
     Active Substance: CARBAMAZEPINE
     Dosage: 200 MG, QD
     Route: 048
     Dates: start: 20080510, end: 20080606
  44. TEGRETOL [Concomitant]
     Active Substance: CARBAMAZEPINE
     Dosage: 100 MG, QD
     Route: 048
     Dates: start: 20080614, end: 20080628

REACTIONS (6)
  - Affect lability [Recovering/Resolving]
  - Aspiration [Unknown]
  - Cardio-respiratory arrest [Unknown]
  - Anger [Recovering/Resolving]
  - Altered state of consciousness [Not Recovered/Not Resolved]
  - Hyperglycaemia [Recovering/Resolving]

NARRATIVE: CASE EVENT DATE: 200801
